FAERS Safety Report 23158081 (Version 1)
Quarter: 2023Q4

REPORT INFORMATION
  Report Type: Spontaneous
  Country: DE (occurrence: DE)
  Receive Date: 20231108
  Receipt Date: 20231108
  Transmission Date: 20240109
  Serious: Yes (Life-Threatening, Hospitalization, Other)
  Sender: FDA-Public Use
  Company Number: DE-DCGMA-23201600

PATIENT
  Age: 90 Year
  Sex: Male
  Weight: 80 kg

DRUGS (12)
  1. RIVASTIGMINE [Suspect]
     Active Substance: RIVASTIGMINE
     Indication: Dementia
     Dosage: 1 - 0 - 1?HAUSMEDIKATION, DAUER DER EINNAHME UNBEKANNT;  (HOME MEDICATION, DURATION OF USE UNKNOWN;)
  2. MIRTAZAPINE [Concomitant]
     Active Substance: MIRTAZAPINE
     Indication: Product used for unknown indication
     Dosage: 0-0-1-0?HAUSMEDIKATION VOR STATION?RER AUFNAHME.??0-0-1-0?HOME MEDICATION BEFORE ADMISSION TO HOSPIT
  3. SIMVASTATIN [Concomitant]
     Active Substance: SIMVASTATIN
     Indication: Product used for unknown indication
     Dosage: 0-0-1-0?HAUSMEDIKATION VOR STATION?RER AUFNAHME.
  4. ZOLPIDEM [Concomitant]
     Active Substance: ZOLPIDEM TARTRATE
     Indication: Sleep disorder
     Dosage: 10 MG ZUR NACHT BEI SCHLAFST?RUNGEN?HAUSMEDIKATION VOR STATION?RER AUFNAHME.??10 MG AT NIGHT FOR SLE
  5. TILIDINE [Concomitant]
     Active Substance: TILIDINE
     Indication: Product used for unknown indication
     Dosage: 50/4 MG BEI BEDARF?HAUSMEDIKATION VOR STATION?RER AUFNAHME.??50/4 MG IF REQUIRED?HOME MEDICATION BEF
  6. METAMIZOLE SODIUM [Concomitant]
     Active Substance: METAMIZOLE SODIUM
     Indication: Product used for unknown indication
     Dosage: 500 MG BEI BEDARF?HAUSMEDIKATION VOR STATION?RER AUFNAHME.??500 MG IF REQUIRED?HOME MEDICATION BEFOR
  7. ASPIRIN [Concomitant]
     Active Substance: ASPIRIN
     Indication: Product used for unknown indication
     Dosage: HAUSMEDIKATION VOR STATION?RER AUFNAHME.??HOME MEDICATION BEFORE ADMISSION TO HOSPITAL.
  8. CANDESARTAN [Concomitant]
     Active Substance: CANDESARTAN
     Indication: Product used for unknown indication
     Dosage: 1 - 0 - 0.5?HAUSMEDIKATION VOR STATION?RER AUFNAHME.??1 - 0 - 0.5?HOME MEDICATION BEFORE ADMISSION T
  9. FOLIC ACID [Concomitant]
     Active Substance: FOLIC ACID
     Indication: Product used for unknown indication
     Dosage: HAUSMEDIKATION VOR STATION?RER AUFNAHME.??HOME MEDICATION BEFORE ADMISSION TO HOSPITAL.
  10. BRIMONIDINE [Concomitant]
     Active Substance: BRIMONIDINE TARTRATE
     Indication: Product used for unknown indication
     Dosage: 2 MG / ML AUGENTROPFEN, 1 - 0 - 1?HAUSMEDIKATION VOR STATION?RER AUFNAHME.??2 MG / ML EYE DROPS, 1 -
  11. TORSEMIDE [Concomitant]
     Active Substance: TORSEMIDE
     Indication: Product used for unknown indication
     Dosage: 1-0-0-0?HAUSMEDIKATION VOR STATION?RER AUFNAHME.??1-0-0-0?HOME MEDICATION BEFORE ADMISSION TO HOSPIT
  12. INSULIN HUMAN [Concomitant]
     Active Substance: INSULIN HUMAN
     Indication: Product used for unknown indication
     Dosage: 26 - 0 - 24 - 0 ?HAUSMEDIKATION VOR STATION?RER AUFNAHME.??26 - 0 - 24 - 0 ?HOME MEDICATION BEFORE I

REACTIONS (3)
  - Atrioventricular block complete [Not Recovered/Not Resolved]
  - Fall [Not Recovered/Not Resolved]
  - Bradycardia [Not Recovered/Not Resolved]

NARRATIVE: CASE EVENT DATE: 20230718
